FAERS Safety Report 4623469-6 (Version None)
Quarter: 2005Q1

REPORT INFORMATION
  Report Type: 
  Country: None (occurrence: None)
  Receive Date: 20050330
  Receipt Date: 20050317
  Transmission Date: 20050727
  Serious: Yes (Life-Threatening)
  Sender: FDA-Public Use
  Company Number: 2005GB00461

PATIENT
  Age: 73 Year
  Sex: Female

DRUGS (13)
  1. ARIMIDEX [Suspect]
     Indication: BREAST CANCER
     Dosage: 1 MG QD PO
     Route: 048
     Dates: start: 20041020
  2. PLACEBO [Suspect]
     Indication: BREAST CANCER
     Dates: start: 20041020
  3. GEFITINIB [Suspect]
     Indication: BREAST CANCER
     Dosage: 250 MG QD PO
     Route: 048
     Dates: start: 20041020
  4. BENDROFLUAZIDE [Concomitant]
  5. THYROXINE [Concomitant]
  6. DOVOBET [Concomitant]
  7. BECLOMETHASONE AQUEOUS [Concomitant]
  8. BECONASE [Concomitant]
  9. BECONASE [Concomitant]
  10. NO MATCH [Concomitant]
  11. VENTOLIN HFA [Concomitant]
  12. EXELDERM [Concomitant]
  13. HYDROCORTISONE [Concomitant]

REACTIONS (2)
  - HYPERTENSIVE CRISIS [None]
  - PROCEDURAL HYPERTENSION [None]
